FAERS Safety Report 7025679-X (Version None)
Quarter: 2010Q4

REPORT INFORMATION
  Report Type: 
  Country: None (occurrence: None)
  Receive Date: 20101004
  Receipt Date: 20100923
  Transmission Date: 20110411
  Serious: Yes (Hospitalization)
  Sender: FDA-Public Use
  Company Number: US-BIOGENIDEC-2010BI009086

PATIENT
  Age: 66 Year
  Sex: Female
  Weight: 44 kg

DRUGS (53)
  1. TYSABRI [Suspect]
     Indication: MULTIPLE SCLEROSIS
     Route: 042
     Dates: start: 20090715
  2. CRANBERRY [Concomitant]
     Route: 048
     Dates: start: 20090518
  3. ALPRAZOLAM [Concomitant]
     Route: 048
     Dates: start: 20090518
  4. AMBIEN CR [Concomitant]
     Route: 048
     Dates: start: 20090629
  5. BACLOFEN [Concomitant]
     Route: 048
     Dates: start: 20091215
  6. BACLOFEN [Concomitant]
  7. BACLOFEN [Concomitant]
  8. BACLOFEN [Concomitant]
  9. BOTOX [Concomitant]
     Route: 058
     Dates: start: 20090602
  10. DANTROLENE SODIUM [Concomitant]
     Route: 048
     Dates: start: 20100120
  11. DANTROLENE SODIUM [Concomitant]
  12. ZYPREXA [Concomitant]
  13. ZYPREXA [Concomitant]
  14. DEPAKOTE ER [Concomitant]
     Route: 048
     Dates: start: 20091215
  15. DULCOLAX [Concomitant]
     Route: 048
     Dates: start: 20090518
  16. ERGOCALCIFEROL [Concomitant]
     Route: 048
     Dates: start: 20091215
  17. FOSAMAX [Concomitant]
     Route: 048
     Dates: start: 20090518
  18. FUROSEMIDE [Concomitant]
     Route: 048
     Dates: start: 20090518
  19. GEODON [Concomitant]
     Route: 048
     Dates: start: 20090518
  20. GEODON [Concomitant]
  21. GLYCOLAX [Concomitant]
     Route: 048
     Dates: start: 20090813
  22. LORTAB [Concomitant]
     Route: 048
     Dates: start: 20090518
  23. METOPROLOL TARTRATE [Concomitant]
     Route: 048
     Dates: start: 20090515
  24. METOPROLOL TARTRATE [Concomitant]
     Route: 048
  25. POTASSIUM [Concomitant]
     Route: 048
     Dates: start: 20090518
  26. RECLAST [Concomitant]
     Route: 042
     Dates: start: 20090603
  27. REMIFEMIN [Concomitant]
     Route: 048
     Dates: start: 20090518
  28. TIZANIDINE HCL [Concomitant]
     Route: 048
     Dates: start: 20091118
  29. TIZANIDINE HCL [Concomitant]
  30. VESICARE [Concomitant]
     Route: 048
     Dates: start: 20100210
  31. VITAMIN D [Concomitant]
     Route: 048
     Dates: start: 20100210
  32. XOPENEX [Concomitant]
     Route: 055
     Dates: start: 20090518
  33. ZOLOFT [Concomitant]
     Route: 048
     Dates: start: 20090518
  34. ZOLOFT [Concomitant]
  35. VITAMIN B [Concomitant]
  36. BENADRYL [Concomitant]
  37. PROMETHAZINE [Concomitant]
  38. PROMETHAZINE [Concomitant]
  39. DIPHENOXYLATE [Concomitant]
  40. FERROUS SULFATE [Concomitant]
     Route: 048
  41. MUCOMYST [Concomitant]
  42. ENABLEX [Concomitant]
  43. HYDROCODONE [Concomitant]
  44. ADVIL LIQUI-GELS [Concomitant]
  45. ALEVE (CAPLET) [Concomitant]
  46. CLONIDINE [Concomitant]
  47. LYRICA [Concomitant]
     Route: 048
  48. ACETAMINOPHEN [Concomitant]
  49. VITAMIN TAB [Concomitant]
  50. NYSTATIN [Concomitant]
  51. CALCIUM [Concomitant]
  52. IRON [Concomitant]
  53. ASCORBIC ACID [Concomitant]

REACTIONS (4)
  - MENTAL STATUS CHANGES [None]
  - PNEUMONIA [None]
  - RESPIRATORY FAILURE [None]
  - URINARY TRACT INFECTION [None]
